FAERS Safety Report 6741562-9 (Version None)
Quarter: 2010Q2

REPORT INFORMATION
  Report Type: 
  Country: None (occurrence: None)
  Receive Date: 20100526
  Receipt Date: 20100520
  Transmission Date: 20101027
  Serious: Yes (Other)
  Sender: FDA-Public Use
  Company Number: TR-ABBOTT-10P-161-0646031-00

PATIENT
  Age: 40 Year
  Sex: Female

DRUGS (3)
  1. ZEMPLAR [Suspect]
     Indication: RENAL FAILURE CHRONIC
     Route: 042
     Dates: end: 20100501
  2. SEVALEMER [Concomitant]
     Indication: DRUG USE FOR UNKNOWN INDICATION
  3. CALCIUM ACETATE [Concomitant]
     Indication: DRUG USE FOR UNKNOWN INDICATION

REACTIONS (1)
  - SKIN LESION [None]
